FAERS Safety Report 5902943-6 (Version None)
Quarter: 2008Q3

REPORT INFORMATION
  Report Type: 
  Country: None (occurrence: None)
  Receive Date: 20080930
  Receipt Date: 20080922
  Transmission Date: 20090109
  Serious: Yes (Other)
  Sender: FDA-Public Use
  Company Number: US-AVENTIS-200815061US

PATIENT
  Sex: Female
  Weight: 101.6 kg

DRUGS (7)
  1. LANTUS [Suspect]
     Route: 058
     Dates: start: 20080717
  2. ASPIRIN [Concomitant]
     Dosage: DOSE: UNK
  3. PREMARIN [Concomitant]
     Indication: MENOPAUSE
     Dosage: DOSE QUANTITY: 0.625
     Dates: start: 20050801
  4. GLUCOPHAGE [Concomitant]
     Indication: DIABETES MELLITUS
     Dosage: DOSE QUANTITY: 1000
     Dates: start: 20060828
  5. COREG [Concomitant]
     Dates: start: 20080703
  6. LEVEMIR [Concomitant]
     Indication: DIABETES MELLITUS
     Dates: start: 20080301, end: 20080717
  7. LASIX [Concomitant]
     Dates: start: 20080703

REACTIONS (11)
  - ABDOMINAL PAIN [None]
  - BACTERIA URINE IDENTIFIED [None]
  - BLOOD PRESSURE INCREASED [None]
  - BLOOD URINE PRESENT [None]
  - CYSTITIS [None]
  - HYPERGLYCAEMIA [None]
  - PROTEIN URINE PRESENT [None]
  - PRURITUS [None]
  - PYURIA [None]
  - SWELLING [None]
  - WEIGHT INCREASED [None]
